FAERS Safety Report 5655361-2 (Version None)
Quarter: 2008Q1

REPORT INFORMATION
  Report Type: 
  Country: None (occurrence: None)
  Receive Date: 20080219
  Receipt Date: 20080116
  Transmission Date: 20080703
  Serious: No
  Sender: FDA-Public Use
  Company Number: WAES 0801USA03455

PATIENT
  Age: 78 Year

DRUGS (5)
  1. JANUVIA [Suspect]
     Indication: DIABETES MELLITUS
     Dosage: 100 MG/DAILY/PO ; 50 MG/ DAILY/PO
     Route: 048
     Dates: start: 20080111, end: 20080114
  2. JANUVIA [Suspect]
     Indication: DIABETES MELLITUS
     Dosage: 100 MG/DAILY/PO ; 50 MG/ DAILY/PO
     Route: 048
     Dates: start: 20080115
  3. GLUMET [Concomitant]
  4. PLAVIX [Concomitant]
  5. ASPIRIN [Concomitant]

REACTIONS (1)
  - NIGHT SWEATS [None]
